FAERS Safety Report 6640209-X (Version None)
Quarter: 2010Q1

REPORT INFORMATION
  Report Type: 
  Country: None (occurrence: None)
  Receive Date: 20100318
  Receipt Date: 20100312
  Transmission Date: 20100710
  Serious: Yes (Death, Hospitalization)
  Sender: FDA-Public Use
  Company Number: IT-CELGENEUS-083-21880-09081404

PATIENT
  Sex: Male
  Weight: 77 kg

DRUGS (12)
  1. REVLIMID [Suspect]
     Indication: MULTIPLE MYELOMA
     Route: 048
     Dates: start: 20090720, end: 20090813
  2. DEXAMETHASONE [Concomitant]
     Indication: MULTIPLE MYELOMA
     Dosage: TOTAL MONTHLY DOSE 48
     Route: 051
     Dates: start: 20090720
  3. FUROSEMIDE [Concomitant]
     Indication: OEDEMA
     Route: 048
     Dates: start: 20090626, end: 20090813
  4. LANSOPRAZOLO [Concomitant]
     Indication: GASTRITIS
     Route: 048
     Dates: start: 20070921
  5. ACETYLSALICYLIC ACID SRT [Concomitant]
     Indication: THROMBOSIS PROPHYLAXIS
     Route: 048
     Dates: start: 20090320, end: 20090813
  6. SODIUM BICARBONATE [Concomitant]
     Indication: RENAL FAILURE
     Route: 048
     Dates: start: 20070921, end: 20090813
  7. CALCIUM CARBONATE [Concomitant]
     Indication: RENAL FAILURE
     Route: 048
     Dates: start: 20070921, end: 20090813
  8. ALFUZOSINA [Concomitant]
     Route: 048
     Dates: start: 20090626
  9. FINASTERIDE [Concomitant]
     Route: 048
     Dates: start: 20070921
  10. EPOETIN BETA [Concomitant]
     Indication: ANAEMIA
     Route: 048
     Dates: start: 20070921
  11. TRIVALENT ICON [Concomitant]
     Indication: ANAEMIA
     Route: 048
     Dates: start: 20090626
  12. CALCITRIOLO [Concomitant]
     Indication: HYPOCALCAEMIA
     Route: 048
     Dates: start: 20090320

REACTIONS (2)
  - CARDIOGENIC SHOCK [None]
  - MYOCARDIAL INFARCTION [None]
